FAERS Safety Report 8403793-1 (Version None)
Quarter: 2012Q2

REPORT INFORMATION
  Report Type: 
  Country: None (occurrence: None)
  Receive Date: 20120601
  Receipt Date: 20110901
  Transmission Date: 20120825
  Serious: No
  Sender: FDA-Public Use
  Company Number: US-NOVEN-11US003100

PATIENT
  Age: 18 Year
  Sex: Female

DRUGS (1)
  1. DAYTRANA [Suspect]
     Indication: ATTENTION DEFICIT/HYPERACTIVITY DISORDER
     Dosage: 1 PATCH DAILY FOR 9 HOURS
     Route: 062
     Dates: start: 20110801

REACTIONS (2)
  - OFF LABEL USE [None]
  - PRURITUS [None]
